FAERS Safety Report 17702804 (Version 1)
Quarter: 2020Q2

REPORT INFORMATION
  Report Type: Spontaneous
  Country: US (occurrence: US)
  Receive Date: 20200423
  Receipt Date: 20200423
  Transmission Date: 20200714
  Serious: No
  Sender: FDA-Public Use
  Company Number: US-JAZZ-2017-US-007078

PATIENT
  Sex: Female

DRUGS (23)
  1. ELESTRIN [Concomitant]
     Active Substance: ESTRADIOL
  2. COARTEM [Concomitant]
     Active Substance: ARTEMETHER\LUMEFANTRINE
  3. RANITIDINE. [Concomitant]
     Active Substance: RANITIDINE
  4. NEURONTIN [Concomitant]
     Active Substance: GABAPENTIN
  5. LEXAPRO [Concomitant]
     Active Substance: ESCITALOPRAM OXALATE
  6. VITAMIN D3 [Concomitant]
     Active Substance: CHOLECALCIFEROL
  7. BACLOFEN. [Concomitant]
     Active Substance: BACLOFEN
  8. MALARONE [Concomitant]
     Active Substance: ATOVAQUONE\PROGUANIL HYDROCHLORIDE
  9. XYREM [Suspect]
     Active Substance: SODIUM OXYBATE
     Indication: NARCOLEPSY
     Dosage: 3G, BID
     Route: 048
     Dates: start: 201512, end: 2016
  10. XYREM [Suspect]
     Active Substance: SODIUM OXYBATE
     Indication: CATAPLEXY
     Dosage: 4.5G, BID
     Route: 048
     Dates: start: 2016
  11. NAMENDA [Concomitant]
     Active Substance: MEMANTINE HYDROCHLORIDE
  12. NAPROXEN. [Concomitant]
     Active Substance: NAPROXEN
  13. ATIVAN [Concomitant]
     Active Substance: LORAZEPAM
  14. MILK THISTLE [SILYBUM MARIANUM] [Concomitant]
     Active Substance: DIETARY SUPPLEMENT\HERBALS\MILK THISTLE
  15. NYSTATIN. [Concomitant]
     Active Substance: NYSTATIN
  16. ZOFRAN [Concomitant]
     Active Substance: ONDANSETRON HYDROCHLORIDE
  17. CLINDAMYCIN HCL [Concomitant]
     Active Substance: CLINDAMYCIN HYDROCHLORIDE
  18. MERREM [Concomitant]
     Active Substance: MEROPENEM
  19. ROCEPHIN [Concomitant]
     Active Substance: CEFTRIAXONE SODIUM
  20. FLAGYL [Concomitant]
     Active Substance: METRONIDAZOLE\METRONIDAZOLE HYDROCHLORIDE
  21. OMEGA 3 FISH OIL [FISH OIL] [Concomitant]
  22. URSODIOL. [Concomitant]
     Active Substance: URSODIOL
  23. NUVIGIL [Concomitant]
     Active Substance: ARMODAFINIL

REACTIONS (4)
  - Infectious mononucleosis [Recovering/Resolving]
  - Memory impairment [Not Recovered/Not Resolved]
  - Sleep disorder [Unknown]
  - Balance disorder [Unknown]
